FAERS Safety Report 21001182 (Version 1)
Quarter: 2022Q2

REPORT INFORMATION
  Report Type: Spontaneous
  Country: US (occurrence: US)
  Receive Date: 20220624
  Receipt Date: 20220624
  Transmission Date: 20220720
  Serious: No
  Sender: FDA-Public Use
  Company Number: US-BioHaven Pharmaceuticals-2022BHV000810

PATIENT
  Age: 62 Year
  Sex: Female

DRUGS (1)
  1. NURTEC ODT [Suspect]
     Active Substance: RIMEGEPANT SULFATE
     Indication: Migraine
     Dosage: USED SAMPLE ONCE ON 02/01/22 AND DIDN^T USE AGAIN UNTIL ABOUT ONE WEEK PRIOR TO PHONE CALL ON 3/18
     Route: 048
     Dates: start: 20220202

REACTIONS (1)
  - Drug ineffective [Unknown]
